FAERS Safety Report 5677495-9 (Version None)
Quarter: 2008Q1

REPORT INFORMATION
  Report Type: 
  Country: None (occurrence: None)
  Receive Date: 20080324
  Receipt Date: 20080318
  Transmission Date: 20080703
  Serious: Yes (Other)
  Sender: FDA-Public Use
  Company Number: ZA-PFIZER INC-2008025460

PATIENT
  Age: 66 Year
  Sex: Male

DRUGS (3)
  1. CAVERJECT [Suspect]
     Route: 051
  2. BETA BLOCKING AGENTS [Concomitant]
  3. ANGIOTENSIN II ANTAGONISTS [Concomitant]

REACTIONS (1)
  - ATRIAL FIBRILLATION [None]
